FAERS Safety Report 23108334 (Version 1)
Quarter: 2023Q4

REPORT INFORMATION
  Report Type: Report from Study
  Country: DE (occurrence: DE)
  Receive Date: 20231026
  Receipt Date: 20231026
  Transmission Date: 20240110
  Serious: Yes (Hospitalization)
  Sender: FDA-Public Use
  Company Number: DE-MYLANLABS-2023M1112136

PATIENT
  Sex: Female

DRUGS (3)
  1. HULIO [Suspect]
     Active Substance: ADALIMUMAB-FKJP
     Indication: Product used for unknown indication
     Dosage: 40MG /EVERY 2 WEEKS
     Route: 065
     Dates: end: 202308
  2. ORENCIA [Suspect]
     Active Substance: ABATACEPT
     Indication: Product used for unknown indication
     Dosage: 125 MILLIGRAM, QW
     Route: 058
     Dates: start: 20230825
  3. METHOTREXATE SODIUM [Concomitant]
     Active Substance: METHOTREXATE SODIUM
     Dosage: 10 MILLIGRAM, QW
     Route: 065
     Dates: start: 202308

REACTIONS (1)
  - Rheumatoid arthritis [Recovered/Resolved]
